FAERS Safety Report 21777132 (Version 2)
Quarter: 2023Q1

REPORT INFORMATION
  Report Type: Spontaneous
  Country: US (occurrence: US)
  Receive Date: 20221226
  Receipt Date: 20230101
  Transmission Date: 20230417
  Serious: No
  Sender: FDA-Public Use
  Company Number: US-BAUSCHBL-2022BNL003104

PATIENT
  Age: 71 Year
  Sex: Male
  Weight: 127.12 kg

DRUGS (3)
  1. LUMIFY [Suspect]
     Active Substance: BRIMONIDINE TARTRATE
     Indication: Ocular hyperaemia
     Dosage: START DATE (2 YEARS AGO)
     Route: 047
     Dates: start: 2020
  2. LUMIFY [Suspect]
     Active Substance: BRIMONIDINE TARTRATE
  3. ALAWAY [Concomitant]
     Active Substance: KETOTIFEN FUMARATE
     Indication: Eye pruritus
     Dosage: ONE DROP HALF HOUR AFTER LUMIFY ONCE A DAY,
     Route: 065

REACTIONS (2)
  - Instillation site irritation [Recovered/Resolved]
  - Instillation site pruritus [Recovered/Resolved]

NARRATIVE: CASE EVENT DATE: 20221222
